FAERS Safety Report 14590478 (Version 2)
Quarter: 2018Q1

REPORT INFORMATION
  Report Type: Spontaneous
  Country: US (occurrence: US)
  Receive Date: 20180302
  Receipt Date: 20180312
  Transmission Date: 20180509
  Serious: Yes (Life-Threatening, Hospitalization, Other)
  Sender: FDA-Public Use
  Company Number: PHHY2018US029081

PATIENT
  Age: 17 Year
  Sex: Male

DRUGS (1)
  1. METFORMIN [Suspect]
     Active Substance: METFORMIN HYDROCHLORIDE
     Indication: SUICIDAL IDEATION
     Dosage: 20 TABLETS (0.173 G/KG BODY WEIGHT), TOTAL DOSE OF 10,000 MG
     Route: 048

REACTIONS (7)
  - Renal impairment [Unknown]
  - Hypoglycaemia [Recovered/Resolved]
  - Metabolic acidosis [Unknown]
  - Intentional overdose [Unknown]
  - Lactic acidosis [Unknown]
  - Cardiomyopathy [Unknown]
  - Toxicity to various agents [Unknown]
